FAERS Safety Report 8846340 (Version 2)
Quarter: 2013Q1

REPORT INFORMATION
  Report Type: Spontaneous
  Country: US (occurrence: US)
  Receive Date: 20121018
  Receipt Date: 20130305
  Transmission Date: 20140127
  Serious: No
  Sender: FDA-Public Use
  Company Number: US-BIOGENIDEC-2012BI043853

PATIENT
  Sex: Male
  Weight: 132 kg

DRUGS (9)
  1. TYSABRI [Suspect]
     Indication: MULTIPLE SCLEROSIS
     Route: 042
     Dates: start: 20110822, end: 201210
  2. AMPYRA [Concomitant]
     Route: 048
  3. CIALIS [Concomitant]
  4. CITALOPRAM [Concomitant]
  5. BUSPIRONE [Concomitant]
  6. MULTIVIATMIN [Concomitant]
  7. B COMPLEX [Concomitant]
  8. VITAMIN D [Concomitant]
  9. FISH OIL [Concomitant]

REACTIONS (7)
  - Condition aggravated [Unknown]
  - Ataxia [Unknown]
  - Tremor [Unknown]
  - Fall [Recovered/Resolved]
  - Drug specific antibody present [Unknown]
  - Multiple sclerosis [Not Recovered/Not Resolved]
  - Drug ineffective [Unknown]
